FAERS Safety Report 24921203 (Version 1)
Quarter: 2025Q1

REPORT INFORMATION
  Report Type: Spontaneous
  Country: PT (occurrence: PT)
  Receive Date: 20250204
  Receipt Date: 20250204
  Transmission Date: 20250408
  Serious: Yes (Other)
  Sender: GILEAD
  Company Number: PT-GILEAD-2025-0701269

PATIENT
  Age: 66 Year
  Sex: Male

DRUGS (4)
  1. TRUVADA [Suspect]
     Active Substance: EMTRICITABINE\TENOFOVIR DISOPROXIL FUMARATE
     Indication: HIV infection
     Route: 065
     Dates: start: 201206
  2. TRUVADA [Suspect]
     Active Substance: EMTRICITABINE\TENOFOVIR DISOPROXIL FUMARATE
     Route: 065
     Dates: start: 201405
  3. LOPINAVIR\RITONAVIR [Concomitant]
     Active Substance: LOPINAVIR\RITONAVIR
     Indication: Product used for unknown indication
     Route: 065
  4. EFAVIRENZ [Concomitant]
     Active Substance: EFAVIRENZ
     Indication: Product used for unknown indication
     Route: 065
     Dates: start: 201405

REACTIONS (7)
  - Pneumonia haemophilus [Unknown]
  - Jaundice [Unknown]
  - Nightmare [Unknown]
  - Behaviour disorder [Unknown]
  - Diarrhoea [Unknown]
  - Insomnia [Unknown]
  - Product dose omission issue [Unknown]

NARRATIVE: CASE EVENT DATE: 20120601
